FAERS Safety Report 19646148 (Version 1)
Quarter: 2021Q3

REPORT INFORMATION
  Report Type: Spontaneous
  Country: US (occurrence: US)
  Receive Date: 20210727
  Receipt Date: 20210727
  Transmission Date: 20211014
  Serious: No
  Sender: FDA-Public Use
  Company Number: None

PATIENT

DRUGS (1)
  1. ARIELLA MOLE CORRECTOR SKIN TAG REMOVER [SALICYLIC ACID] [Suspect]
     Active Substance: SALICYLIC ACID
     Indication: ACROCHORDON EXCISION
     Route: 061

REACTIONS (1)
  - Application site burn [None]

NARRATIVE: CASE EVENT DATE: 20210607
